FAERS Safety Report 20764791 (Version 1)
Quarter: 2022Q2

REPORT INFORMATION
  Report Type: Report from Study
  Country: FI (occurrence: FI)
  Receive Date: 20220428
  Receipt Date: 20220428
  Transmission Date: 20220720
  Serious: Yes (Other)
  Sender: FDA-Public Use
  Company Number: FI-MYLANLABS-2022M1030762

PATIENT
  Age: 26 Year
  Sex: Male

DRUGS (1)
  1. CLOZAPINE [Suspect]
     Active Substance: CLOZAPINE
     Indication: Product used for unknown indication
     Dosage: UNK
     Dates: start: 202202, end: 2022

REACTIONS (5)
  - Infection [Unknown]
  - C-reactive protein increased [Unknown]
  - Troponin T increased [Unknown]
  - Pyrexia [Unknown]
  - Myocarditis [Unknown]

NARRATIVE: CASE EVENT DATE: 20220101
